FAERS Safety Report 16707328 (Version 3)
Quarter: 2020Q1

REPORT INFORMATION
  Report Type: Spontaneous
  Country: US (occurrence: US)
  Receive Date: 20190815
  Receipt Date: 20200103
  Transmission Date: 20200409
  Serious: Yes (Hospitalization, Other)
  Sender: FDA-Public Use
  Company Number: US-STRONGBRIDGE BIOPHARMA-2019-STR-000210

PATIENT
  Age: 15 Year
  Sex: Male

DRUGS (2)
  1. KEVEYIS [Suspect]
     Active Substance: DICHLORPHENAMIDE
     Indication: MYOTONIA CONGENITA
     Dosage: 50 MG, BID
     Route: 048
  2. KEVEYIS [Suspect]
     Active Substance: DICHLORPHENAMIDE
     Dosage: 50 MG, BID
     Route: 048
     Dates: start: 20181211

REACTIONS (5)
  - Disease recurrence [Recovering/Resolving]
  - Migraine [Not Recovered/Not Resolved]
  - Migraine [Recovering/Resolving]
  - Nephrolithiasis [Not Recovered/Not Resolved]
  - Immune system disorder [Recovering/Resolving]

NARRATIVE: CASE EVENT DATE: 20190805
